FAERS Safety Report 25504683 (Version 1)
Quarter: 2025Q3

REPORT INFORMATION
  Report Type: Spontaneous
  Country: JP (occurrence: JP)
  Receive Date: 20250702
  Receipt Date: 20250702
  Transmission Date: 20251020
  Serious: Yes (Disabling, Other)
  Sender: SANDOZ
  Company Number: JP-MLMSERVICE-20250609-PI539426-00336-1

PATIENT
  Age: 51 Year
  Sex: Female

DRUGS (2)
  1. DENOSUMAB [Suspect]
     Active Substance: DENOSUMAB
     Indication: Metastases to bone
     Route: 065
  2. ZOLEDRONIC ACID [Suspect]
     Active Substance: ZOLEDRONIC ACID
     Indication: Metastases to bone
     Dosage: THREE DOSES
     Route: 065

REACTIONS (2)
  - Excessive granulation tissue [Recovered/Resolved]
  - Osteonecrosis of external auditory canal [Recovered/Resolved]
